FAERS Safety Report 18542080 (Version 3)
Quarter: 2021Q1

REPORT INFORMATION
  Report Type: Report from Study
  Country: GB (occurrence: GB)
  Receive Date: 20201124
  Receipt Date: 20210306
  Transmission Date: 20210419
  Serious: Yes (Hospitalization, Other)
  Sender: FDA-Public Use
  Company Number: NVSC2020GB313217

PATIENT
  Sex: Male

DRUGS (2)
  1. HYRIMOZ [Suspect]
     Active Substance: ADALIMUMAB-ADAZ
     Dosage: 1 DF (40 MG/0.8ML EVERY THREE WEEK)
     Route: 065
  2. HYRIMOZ [Suspect]
     Active Substance: ADALIMUMAB-ADAZ
     Indication: ANKYLOSING SPONDYLITIS
     Dosage: 1 DF (40 MG/0.8ML EVERY OTHER WEEK)
     Route: 065
     Dates: start: 20190118

REACTIONS (16)
  - Psoriasis [Unknown]
  - Catarrh [Unknown]
  - Decreased activity [Unknown]
  - Cellulitis [Unknown]
  - Pain [Unknown]
  - Rhinorrhoea [Unknown]
  - Suicidal ideation [Unknown]
  - Boredom [Unknown]
  - Fall [Unknown]
  - Nausea [Unknown]
  - Anxiety [Unknown]
  - Depressed mood [Unknown]
  - Inappropriate schedule of product administration [Unknown]
  - Drug ineffective [Unknown]
  - Cardiac arrest [Unknown]
  - Joint injury [Unknown]
